FAERS Safety Report 21765263 (Version 1)
Quarter: 2022Q4

REPORT INFORMATION
  Report Type: Report from Study
  Country: US (occurrence: US)
  Receive Date: 20221222
  Receipt Date: 20221222
  Transmission Date: 20230113
  Serious: Yes (Death, Hospitalization)
  Sender: FDA-Public Use
  Company Number: US-ELI_LILLY_AND_COMPANY-US202212009568

PATIENT

DRUGS (5)
  1. GEMCITABINE HYDROCHLORIDE [Suspect]
     Active Substance: GEMCITABINE HYDROCHLORIDE
     Indication: Pancreatic carcinoma metastatic
     Dosage: 1000 MG/M2, UNKNOWN
     Route: 065
  2. ULIXERTINIB [Concomitant]
     Active Substance: ULIXERTINIB
     Indication: Pancreatic carcinoma metastatic
     Dosage: 600 MG, BID
     Route: 048
  3. ULIXERTINIB [Concomitant]
     Active Substance: ULIXERTINIB
     Dosage: 450 MG, BID
     Route: 048
  4. ULIXERTINIB [Concomitant]
     Active Substance: ULIXERTINIB
     Dosage: 300 MG, BID
     Route: 048
  5. PACLITAXEL [Concomitant]
     Active Substance: PACLITAXEL
     Indication: Pancreatic carcinoma metastatic
     Dosage: 125 MG/M2, UNKNOWN
     Route: 065

REACTIONS (3)
  - Respiratory failure [Fatal]
  - Pneumonitis [Fatal]
  - Anaemia [Unknown]
